FAERS Safety Report 4809253-9 (Version None)
Quarter: 2005Q4

REPORT INFORMATION
  Report Type: 
  Country: None (occurrence: None)
  Receive Date: 20051021
  Receipt Date: 20021106
  Transmission Date: 20060501
  Serious: Yes (Other)
  Sender: FDA-Public Use
  Company Number: GBS021111892

PATIENT
  Age: 24 Year
  Sex: Male

DRUGS (3)
  1. ZYPREXA [Suspect]
     Indication: SCHIZOPHRENIA
     Dosage: 20 MG/UNKNOWN
     Dates: start: 19980101, end: 20021001
  2. DIAZEPAM [Concomitant]
  3. PROMETHAZINE [Concomitant]

REACTIONS (1)
  - NEUTROPENIA [None]
